FAERS Safety Report 8082255-8 (Version None)
Quarter: 2012Q1

REPORT INFORMATION
  Report Type: 
  Country: None (occurrence: None)
  Receive Date: 20120127
  Receipt Date: 20110215
  Transmission Date: 20120608
  Serious: No
  Sender: FDA-Public Use
  Company Number: US-ABBOTT-11P-163-0705405-00

PATIENT
  Age: 20 Year
  Sex: Male

DRUGS (1)
  1. HUMIRA [Suspect]
     Indication: CROHN'S DISEASE
     Dates: start: 20100802

REACTIONS (5)
  - DEVICE MALFUNCTION [None]
  - OEDEMA PERIPHERAL [None]
  - INCORRECT DOSE ADMINISTERED BY DEVICE [None]
  - FEELING HOT [None]
  - INJECTION SITE HAEMORRHAGE [None]
